FAERS Safety Report 5239988-8 (Version None)
Quarter: 2007Q1

REPORT INFORMATION
  Report Type: 
  Country: None (occurrence: None)
  Receive Date: 20070216
  Receipt Date: 20070207
  Transmission Date: 20070707
  Serious: Yes (Other)
  Sender: FDA-Public Use
  Company Number: AU-PFIZER INC-2007001114

PATIENT
  Sex: Male
  Weight: 96 kg

DRUGS (2)
  1. LIPITOR [Suspect]
     Route: 048
     Dates: start: 20020101, end: 20070115
  2. ASPIRIN [Concomitant]
     Route: 048

REACTIONS (2)
  - AMNESIA [None]
  - ARTERIOSCLEROSIS CORONARY ARTERY [None]
